FAERS Safety Report 18826553 (Version 1)
Quarter: 2021Q1

REPORT INFORMATION
  Report Type: Spontaneous
  Country: AU (occurrence: AU)
  Receive Date: 20210202
  Receipt Date: 20210202
  Transmission Date: 20210419
  Serious: Yes (Other)
  Sender: FDA-Public Use
  Company Number: AU-FERRINGPH-2021FE00511

PATIENT
  Age: 20 Year
  Sex: Male

DRUGS (4)
  1. PROGESTERONE. [Suspect]
     Active Substance: PROGESTERONE
     Indication: TRANSGENDER HORMONAL THERAPY
     Dosage: 100 MG, 1 TIME DAILY
     Route: 065
  2. ESTRADIOL. [Suspect]
     Active Substance: ESTRADIOL
     Indication: TRANSGENDER HORMONAL THERAPY
     Dosage: UNK
     Route: 061
  3. CYPROTERONE ACETATE [Suspect]
     Active Substance: CYPROTERONE ACETATE
     Indication: TRANSGENDER HORMONAL THERAPY
     Dosage: 25 MG, 1 TIME DAILY
     Route: 065
  4. ESTRADIOL. [Suspect]
     Active Substance: ESTRADIOL
     Indication: TRANSGENDER HORMONAL THERAPY
     Dosage: 100 MG, 6?12 MONTHLY
     Route: 059

REACTIONS (4)
  - Hyperprolactinaemia [Recovering/Resolving]
  - Product use in unapproved indication [Unknown]
  - Galactorrhoea [Unknown]
  - Off label use [Unknown]
